FAERS Safety Report 7302192-3 (Version None)
Quarter: 2011Q1

REPORT INFORMATION
  Report Type: 
  Country: None (occurrence: None)
  Receive Date: 20110218
  Receipt Date: 20110208
  Transmission Date: 20110831
  Serious: Yes (Other)
  Sender: FDA-Public Use
  Company Number: PHHY2010CA06800

PATIENT
  Sex: Female

DRUGS (1)
  1. SANDOSTATIN LAR [Suspect]
     Indication: ACROMEGALY
     Dosage: 20 MG, EVERY 4 WEEKS
     Route: 030
     Dates: start: 20070310

REACTIONS (9)
  - ARTHRALGIA [None]
  - MUSCULOSKELETAL PAIN [None]
  - CYSTITIS [None]
  - FATIGUE [None]
  - HEADACHE [None]
  - PAIN [None]
  - POOR QUALITY SLEEP [None]
  - JOINT STIFFNESS [None]
  - DISTURBANCE IN ATTENTION [None]
